FAERS Safety Report 4332262-3 (Version None)
Quarter: 2004Q1

REPORT INFORMATION
  Report Type: 
  Country: None (occurrence: None)
  Receive Date: 20040329
  Receipt Date: 20040315
  Transmission Date: 20041129
  Serious: Yes (Hospitalization)
  Sender: FDA-Public Use
  Company Number: S04-USA-01545-01

PATIENT
  Age: 38 Year
  Sex: Female
  Weight: 62.551 kg

DRUGS (3)
  1. TESSALON [Suspect]
     Indication: COUGH
     Dosage: 100 MG BID PO
     Route: 048
     Dates: start: 20030601, end: 20030601
  2. WELLBUTRIN SR [Suspect]
     Indication: DEPRESSION
     Dosage: 200 MG BID
     Dates: start: 20000101, end: 20030601
  3. WELLBUTRIN SR [Suspect]
     Indication: DEPRESSION
     Dosage: 300 MG QD
     Dates: start: 20030601

REACTIONS (2)
  - AMNESIA [None]
  - GRAND MAL CONVULSION [None]
